FAERS Safety Report 24727033 (Version 1)
Quarter: 2024Q4

REPORT INFORMATION
  Report Type: Spontaneous
  Country: RU (occurrence: RU)
  Receive Date: 20241212
  Receipt Date: 20241212
  Transmission Date: 20250115
  Serious: Yes (Other)
  Sender: BIOGEN
  Company Number: RU-BIOGEN-2024BI01293077

PATIENT
  Sex: Male
  Weight: 120 kg

DRUGS (1)
  1. PLEGRIDY [Suspect]
     Active Substance: PEGINTERFERON BETA-1A
     Indication: Multiple sclerosis
     Route: 050
     Dates: start: 20241118, end: 20241118

REACTIONS (2)
  - Skin ulcer [Not Recovered/Not Resolved]
  - Hyperaemia [Not Recovered/Not Resolved]
